FAERS Safety Report 23983043 (Version 2)
Quarter: 2024Q3

REPORT INFORMATION
  Report Type: Spontaneous
  Country: US (occurrence: US)
  Receive Date: 20240617
  Receipt Date: 20240705
  Transmission Date: 20241017
  Serious: Yes (Other)
  Sender: CALLIDITAS THERAPEUTICS
  Company Number: US-Calliditas-2024CAL00992

PATIENT
  Age: 26 Year
  Sex: Male

DRUGS (4)
  1. TARPEYO [Suspect]
     Active Substance: BUDESONIDE
     Indication: IgA nephropathy
     Route: 048
     Dates: start: 20220728, end: 20240607
  2. LISINOPRIL [Concomitant]
     Active Substance: LISINOPRIL
  3. FISH OIL [Concomitant]
     Active Substance: FISH OIL
  4. VITAMIN D NOS [Concomitant]
     Active Substance: CHOLECALCIFEROL\ERGOCALCIFEROL

REACTIONS (5)
  - Illness [Recovered/Resolved]
  - Renal disorder [Recovered/Resolved]
  - Muscle spasms [Recovered/Resolved]
  - Influenza [Recovered/Resolved]
  - Glomerulonephritis minimal lesion [Not Recovered/Not Resolved]

NARRATIVE: CASE EVENT DATE: 20240522
